FAERS Safety Report 19036660 (Version 1)
Quarter: 2021Q1

REPORT INFORMATION
  Report Type: Spontaneous
  Country: US (occurrence: US)
  Receive Date: 20210319
  Receipt Date: 20210319
  Transmission Date: 20210420
  Serious: No
  Sender: FDA-Public Use
  Company Number: None

PATIENT
  Age: 57 Year
  Sex: Female
  Weight: 91.63 kg

DRUGS (7)
  1. VALTREX [Concomitant]
     Active Substance: VALACYCLOVIR HYDROCHLORIDE
  2. NEBULIZER [Concomitant]
     Active Substance: DEVICE
  3. VIT C + D [Concomitant]
  4. CITALOPRAM [Concomitant]
     Active Substance: CITALOPRAM HYDROBROMIDE
  5. ALBUTEROL SULFATE INHALATION AEROSOL 90 MCG [Suspect]
     Active Substance: ALBUTEROL SULFATE
     Route: 055
     Dates: start: 2021
  6. NAPROXEN. [Concomitant]
     Active Substance: NAPROXEN
  7. SINGULAIR [Concomitant]
     Active Substance: MONTELUKAST SODIUM

REACTIONS (3)
  - Cough [None]
  - Chest discomfort [None]
  - Product substitution issue [None]

NARRATIVE: CASE EVENT DATE: 20210211
